FAERS Safety Report 20538881 (Version 2)
Quarter: 2022Q1

REPORT INFORMATION
  Report Type: Spontaneous
  Country: UY (occurrence: UY)
  Receive Date: 20220302
  Receipt Date: 20220329
  Transmission Date: 20220424
  Serious: No
  Sender: FDA-Public Use
  Company Number: UY-PFIZER INC-202200191103

PATIENT
  Age: 15 Year
  Sex: Male

DRUGS (2)
  1. GENOTROPIN [Suspect]
     Active Substance: SOMATROPIN
     Indication: Short stature
     Dosage: 1 TO 1.4 MG, 7 TIMES PER WEEK
     Dates: start: 20191113
  2. GENOTROPIN [Suspect]
     Active Substance: SOMATROPIN
     Indication: Foetal growth restriction

REACTIONS (2)
  - Poor quality device used [Not Recovered/Not Resolved]
  - Device physical property issue [Not Recovered/Not Resolved]
